FAERS Safety Report 8110846-4 (Version None)
Quarter: 2012Q1

REPORT INFORMATION
  Report Type: 
  Country: None (occurrence: None)
  Receive Date: 20120203
  Receipt Date: 20120127
  Transmission Date: 20120608
  Serious: Yes (Death, Other)
  Sender: FDA-Public Use
  Company Number: GR-AMGEN-GRCSP2012005878

PATIENT
  Age: 76 Year
  Sex: Male

DRUGS (6)
  1. CAPECITABINE [Suspect]
     Indication: GASTRIC CANCER
     Dosage: 2000 MG/M2, Q3WK
  2. DOCETAXEL [Suspect]
     Indication: GASTRIC CANCER
     Dosage: 75 MG/M2, Q3WK
  3. CARBOPLATIN [Suspect]
  4. DOCETAXEL [Suspect]
  5. CARBOPLATIN [Suspect]
     Indication: GASTRIC CANCER
     Dosage: UNK UNK, Q3WK
  6. GRANULOKINE [Suspect]
     Indication: NEUTROPENIA
     Dosage: UNK

REACTIONS (9)
  - NEUTROPENIA [None]
  - GANGRENE [None]
  - DRUG INEFFECTIVE [None]
  - LEPROSY [None]
  - SKIN LESION [None]
  - CHRONIC GRANULOMATOUS DISEASE [None]
  - DISEASE PROGRESSION [None]
  - NECROSIS [None]
  - THROMBOTIC MICROANGIOPATHY [None]
